FAERS Safety Report 19285050 (Version 1)
Quarter: 2021Q2

REPORT INFORMATION
  Report Type: Report from Study
  Country: IT (occurrence: IT)
  Receive Date: 20210521
  Receipt Date: 20210521
  Transmission Date: 20210717
  Serious: Yes (Hospitalization)
  Sender: FDA-Public Use
  Company Number: IT-ACCORD-225538

PATIENT
  Age: 74 Year
  Sex: Female

DRUGS (13)
  1. PANTORC [Concomitant]
     Active Substance: PANTOPRAZOLE SODIUM
  2. CLOPIDOGREL [Suspect]
     Active Substance: CLOPIDOGREL BISULFATE
     Indication: CARDIOVASCULAR EVENT PROPHYLAXIS
     Dates: start: 20200101, end: 20210104
  3. LANTUS [Concomitant]
     Active Substance: INSULIN GLARGINE
  4. LASIX [Concomitant]
     Active Substance: FUROSEMIDE
  5. TINSET [Concomitant]
     Active Substance: OXATOMIDE
  6. SPIRIVA [Concomitant]
     Active Substance: TIOTROPIUM BROMIDE MONOHYDRATE
  7. FOSTER [Concomitant]
     Active Substance: BECLOMETHASONE\FORMOTEROL
  8. ENOXAPARIN [Suspect]
     Active Substance: ENOXAPARIN
     Indication: CARDIOVASCULAR EVENT PROPHYLAXIS
     Dates: start: 20200101, end: 20210104
  9. EUTIROX [Concomitant]
     Active Substance: LEVOTHYROXINE SODIUM
  10. ROCALTROL [Concomitant]
     Active Substance: CALCITRIOL
  11. LISPRO SANOFI [Concomitant]
  12. MESTINON [Concomitant]
     Active Substance: PYRIDOSTIGMINE BROMIDE
  13. ISOPTIN [Concomitant]
     Active Substance: VERAPAMIL HYDROCHLORIDE

REACTIONS (2)
  - Anaemia [Not Recovered/Not Resolved]
  - Rectal haemorrhage [Not Recovered/Not Resolved]

NARRATIVE: CASE EVENT DATE: 20210104
